FAERS Safety Report 5474865-9 (Version None)
Quarter: 2007Q3

REPORT INFORMATION
  Report Type: 
  Country: None (occurrence: None)
  Receive Date: 20070928
  Receipt Date: 20070920
  Transmission Date: 20080115
  Serious: Yes (Hospitalization)
  Sender: FDA-Public Use
  Company Number: 2007-03182

PATIENT
  Age: 62 Year
  Sex: Male
  Weight: 64 kg

DRUGS (14)
  1. VELCADE [Suspect]
     Indication: MULTIPLE MYELOMA
     Dosage: 1.30 MG/M2, INTRAVENOUS
     Route: 042
     Dates: start: 20070712, end: 20070723
  2. OXYCODONE HCL [Suspect]
     Indication: DRUG USE FOR UNKNOWN INDICATION
     Dosage: 40.00 M G, ORAL
     Route: 048
     Dates: start: 20070704
  3. NOVAMIN (PROCHLORPERAZINE) [Concomitant]
  4. MAGNESIUM OXIDE (MAGNESIUM OXIDE) [Concomitant]
  5. ALLOPURINOL [Concomitant]
  6. RITALIN [Concomitant]
  7. METHYCOBAL (MECOBALAMIN) [Concomitant]
  8. CLONAZEPAM [Concomitant]
  9. GLYCYRRHIZA EXTRACT (GLYCYRRHIZA EXTRACT) [Concomitant]
  10. PROTECADIN (LAFUTIDINE) [Concomitant]
  11. ONE-ALPHA (ALFACALCIDOL) [Concomitant]
  12. ALENDRONATE SODIUM [Concomitant]
  13. LOXONIN (LOXOPROFEN SODIUM) [Concomitant]
  14. TENORMIN [Concomitant]

REACTIONS (1)
  - DELIRIUM [None]
